FAERS Safety Report 11824671 (Version 1)
Quarter: 2015Q4

REPORT INFORMATION
  Report Type: Spontaneous
  Country: FR (occurrence: FR)
  Receive Date: 20151210
  Receipt Date: 20151210
  Transmission Date: 20160305
  Serious: Yes (Life-Threatening, Hospitalization)
  Sender: FDA-Public Use
  Company Number: FR-CONCORDIA PHARMACEUTICALS INC.-CO-PL-FR-2015-406

PATIENT
  Age: 20 Hour
  Sex: Male

DRUGS (5)
  1. ASPEGIC [Suspect]
     Active Substance: ASPIRIN DL-LYSINE
     Indication: FOETAL EXPOSURE TIMING UNSPECIFIED
     Route: 064
  2. IMUREL [Suspect]
     Active Substance: AZATHIOPRINE SODIUM
     Indication: FOETAL EXPOSURE TIMING UNSPECIFIED
     Route: 064
  3. CALCIPARINE [Suspect]
     Active Substance: HEPARIN CALCIUM
     Indication: FOETAL EXPOSURE TIMING UNSPECIFIED
     Route: 064
  4. CICLOSPORIN [Suspect]
     Active Substance: CYCLOSPORINE
     Indication: FOETAL EXPOSURE TIMING UNSPECIFIED
     Route: 064
  5. PLAQUENIL [Suspect]
     Active Substance: HYDROXYCHLOROQUINE SULFATE
     Indication: FOETAL EXPOSURE TIMING UNSPECIFIED
     Route: 064
     Dates: end: 20151101

REACTIONS (5)
  - Ecchymosis [Recovering/Resolving]
  - Cerebral haemorrhage [Recovering/Resolving]
  - Pulmonary haemorrhage [Recovering/Resolving]
  - Foetal exposure during pregnancy [None]
  - Haematoma [Recovering/Resolving]

NARRATIVE: CASE EVENT DATE: 20151101
